FAERS Safety Report 6180263-5 (Version None)
Quarter: 2009Q2

REPORT INFORMATION
  Report Type: 
  Country: None (occurrence: None)
  Receive Date: 20090501
  Receipt Date: 20090415
  Transmission Date: 20091009
  Serious: Yes (Other)
  Sender: FDA-Public Use
  Company Number: PAR_02958_2009

PATIENT
  Sex: Male

DRUGS (15)
  1. IBUPROFEN [Suspect]
     Indication: DRUG USE FOR UNKNOWN INDICATION
     Dosage: (600 MG ORAL) ; (1800 MG ORAL) ; (2400 MG, ORAL)
     Route: 048
     Dates: start: 20090204, end: 20090204
  2. IBUPROFEN [Suspect]
     Indication: DRUG USE FOR UNKNOWN INDICATION
     Dosage: (600 MG ORAL) ; (1800 MG ORAL) ; (2400 MG, ORAL)
     Route: 048
     Dates: start: 20090205, end: 20090207
  3. IBUPROFEN [Suspect]
     Indication: DRUG USE FOR UNKNOWN INDICATION
     Dosage: (600 MG ORAL) ; (1800 MG ORAL) ; (2400 MG, ORAL)
     Route: 048
     Dates: start: 20090208, end: 20090218
  4. RIVAROXABAN [Suspect]
     Indication: THROMBOSIS PROPHYLAXIS
     Dosage: (10 MG)
     Dates: start: 20090204, end: 20090218
  5. TUTOFUSIN [Concomitant]
  6. CEPHALOSPIRINS AND RELATED SUBSTANCES [Concomitant]
  7. TROSPIUM CHLORIDE [Concomitant]
  8. PANTOPRAZOLE SODIUM [Concomitant]
  9. TILIDINE HYDROCHLORIDE [Concomitant]
  10. SODIUM CHLORIDE [Concomitant]
  11. VITAMIN B1 TAB [Concomitant]
  12. METAMIZOLE SODIUM [Concomitant]
  13. FERROUS SULFATE TAB [Concomitant]
  14. DEXANOVA-TROPF [Concomitant]
  15. RED BLOOD CELLS [Concomitant]

REACTIONS (4)
  - HAEMOGLOBIN DECREASED [None]
  - PALLOR [None]
  - POST PROCEDURAL HAEMATOMA [None]
  - WOUND HAEMORRHAGE [None]
